FAERS Safety Report 5664281-9 (Version None)
Quarter: 2008Q1

REPORT INFORMATION
  Report Type: 
  Country: None (occurrence: None)
  Receive Date: 20080312
  Receipt Date: 20080227
  Transmission Date: 20080703
  Serious: Yes (Hospitalization)
  Sender: FDA-Public Use
  Company Number: 2008000440

PATIENT
  Sex: Female
  Weight: 45.4 kg

DRUGS (9)
  1. ERLOTINIB             (ERLOTINIB HCL)              (TABLET) [Suspect]
     Indication: NON-SMALL CELL LUNG CANCER
     Dosage: (150 MG,QD), ORAL
     Route: 048
     Dates: start: 20071025, end: 20071206
  2. BEVACIZUMAB         (INJECTION FOR INFUSION) [Suspect]
     Dosage: (15 MG/KG,Q3W), INTRAVENOUS
     Route: 042
     Dates: start: 20071025, end: 20071115
  3. BEVACIZUMAB      (INJECTION FOR INFUSION) [Suspect]
     Dosage: 15MG/KG DAY Q3WK
  4. HEPARIN [Concomitant]
  5. LEVOTHYROXINE SODIUM [Concomitant]
  6. PREDNISONE TAB [Concomitant]
  7. ATENOLOL [Concomitant]
  8. FENTANYL [Concomitant]
  9. PERCOCET [Concomitant]

REACTIONS (6)
  - DEHYDRATION [None]
  - DISEASE PROGRESSION [None]
  - LARGE INTESTINE PERFORATION [None]
  - MENTAL STATUS CHANGES [None]
  - RENAL FAILURE [None]
  - URINARY TRACT INFECTION [None]
